FAERS Safety Report 22960373 (Version 2)
Quarter: 2023Q4

REPORT INFORMATION
  Report Type: Spontaneous
  Country: US (occurrence: US)
  Receive Date: 20230920
  Receipt Date: 20231030
  Transmission Date: 20240109
  Serious: No
  Sender: FDA-Public Use
  Company Number: US-GILEAD-2023-0644349

PATIENT
  Age: 65 Year
  Sex: Female

DRUGS (2)
  1. VIREAD [Suspect]
     Active Substance: TENOFOVIR DISOPROXIL FUMARATE
     Indication: HIV infection
     Dosage: UNK
     Route: 048
     Dates: start: 20011026, end: 20150101
  2. VIREAD [Suspect]
     Active Substance: TENOFOVIR DISOPROXIL FUMARATE
     Dosage: UNK
     Route: 048
     Dates: start: 20050526, end: 20151226

REACTIONS (3)
  - Tooth loss [Unknown]
  - Bone density decreased [Unknown]
  - Bone loss [Recovered/Resolved]

NARRATIVE: CASE EVENT DATE: 20210408
